FAERS Safety Report 9170148 (Version 1)
Quarter: 2013Q1

REPORT INFORMATION
  Report Type: Spontaneous
  Country: US (occurrence: None)
  Receive Date: 20130314
  Receipt Date: 20130314
  Transmission Date: 20140127
  Serious: Yes (Other)
  Sender: FDA-Public Use
  Company Number: None

PATIENT
  Age: 68 Year
  Sex: Male
  Weight: 88.45 kg

DRUGS (1)
  1. AZITHROMYCIN 250 MG PFIZER [Suspect]

REACTIONS (7)
  - Vertigo [None]
  - Nausea [None]
  - Vomiting [None]
  - Diarrhoea [None]
  - Photophobia [None]
  - Dizziness [None]
  - Balance disorder [None]
